FAERS Safety Report 8837274 (Version 1)
Quarter: 2012Q4

REPORT INFORMATION
  Report Type: Report from Study
  Country: CA (occurrence: CA)
  Receive Date: 20121012
  Receipt Date: 20121012
  Transmission Date: 20130627
  Serious: Yes (Hospitalization)
  Sender: FDA-Public Use
  Company Number: CA-ABBOTT-11P-028-0885741-00

PATIENT
  Sex: Male
  Weight: 56.75 kg

DRUGS (3)
  1. HUMIRA 40 MG/0.8 ML PEN [Suspect]
     Indication: CROHN^S DISEASE
     Route: 058
     Dates: start: 20091110
  2. IRON [Concomitant]
     Indication: CROHN^S DISEASE
     Route: 048
     Dates: start: 2012
  3. UNKNOWN CREAM [Concomitant]
     Indication: URTICARIA
     Dosage: Unknown
     Route: 061

REACTIONS (3)
  - Abdominal abscess [Unknown]
  - Intestinal resection [Unknown]
  - Pyrexia [Not Recovered/Not Resolved]
